FAERS Safety Report 23837991 (Version 4)
Quarter: 2025Q2

REPORT INFORMATION
  Report Type: Spontaneous
  Country: US (occurrence: US)
  Receive Date: 20240509
  Receipt Date: 20250604
  Transmission Date: 20250717
  Serious: Yes (Hospitalization, Other)
  Sender: SANOFI AVENTIS
  Company Number: US-SA-SAC20240507000773

PATIENT
  Age: 36 Year
  Sex: Male
  Weight: 81.6 kg

DRUGS (3)
  1. DUPIXENT [Suspect]
     Active Substance: DUPILUMAB
     Indication: Dermatitis atopic
     Dosage: 300 MG, QOW
     Route: 058
  2. BENZONATATE [Concomitant]
     Active Substance: BENZONATATE
  3. AZITHROMYCIN [Concomitant]
     Active Substance: AZITHROMYCIN

REACTIONS (18)
  - Pneumonia [Unknown]
  - Dyspnoea [Unknown]
  - Back disorder [Unknown]
  - Road traffic accident [Unknown]
  - Skin burning sensation [Not Recovered/Not Resolved]
  - Blister [Unknown]
  - Alopecia [Unknown]
  - Pain [Unknown]
  - Ocular hyperaemia [Unknown]
  - Vomiting [Unknown]
  - Pruritus [Unknown]
  - Muscle fatigue [Unknown]
  - Bone disorder [Unknown]
  - Nausea [Unknown]
  - Diarrhoea [Unknown]
  - Dermatitis atopic [Not Recovered/Not Resolved]
  - Skin exfoliation [Not Recovered/Not Resolved]
  - Product dose omission issue [Not Recovered/Not Resolved]

NARRATIVE: CASE EVENT DATE: 20210819
